FAERS Safety Report 4615949-4 (Version None)
Quarter: 2005Q1

REPORT INFORMATION
  Report Type: 
  Country: None (occurrence: None)
  Receive Date: 20050318
  Receipt Date: 20050309
  Transmission Date: 20050727
  Serious: Yes (Other)
  Sender: FDA-Public Use
  Company Number: 2005042620

PATIENT
  Sex: Female

DRUGS (1)
  1. NORVASC [Suspect]
     Indication: ILL-DEFINED DISORDER
     Dosage: ORAL
     Route: 048

REACTIONS (6)
  - EXANTHEM [None]
  - HOT FLUSH [None]
  - MENTAL DISORDER [None]
  - MOVEMENT DISORDER [None]
  - SHOCK [None]
  - SWELLING [None]
